FAERS Safety Report 9168400 (Version 1)
Quarter: 2013Q1

REPORT INFORMATION
  Report Type: Spontaneous
  Country: DE (occurrence: None)
  Receive Date: 20130305
  Receipt Date: 20130305
  Transmission Date: 20140127
  Serious: Yes (Other)
  Sender: FDA-Public Use
  Company Number: 220608

PATIENT
  Sex: Female

DRUGS (1)
  1. PICATO [Suspect]
     Indication: PRODUCT USED FOR UNKNOWN INDICATION

REACTIONS (6)
  - Eyelid oedema [None]
  - Eyelid margin crusting [None]
  - Incorrect dose administered [None]
  - Drug prescribing error [None]
  - Incorrect drug administration duration [None]
  - Off label use [None]
